FAERS Safety Report 25634187 (Version 1)
Quarter: 2025Q3

REPORT INFORMATION
  Report Type: Spontaneous
  Country: US (occurrence: US)
  Receive Date: 20250801
  Receipt Date: 20250801
  Transmission Date: 20251020
  Serious: Yes (Life-Threatening, Other)
  Sender: DR REDDYS
  Company Number: US-DRL-USA-USA/2025/07/011350

PATIENT
  Age: 68 Year
  Sex: Male

DRUGS (3)
  1. BUPRENORPHINE AND NALOXONE [Suspect]
     Active Substance: BUPRENORPHINE HYDROCHLORIDE\NALOXONE HYDROCHLORIDE
     Indication: Back pain
  2. GABAPENTIN [Concomitant]
     Active Substance: GABAPENTIN
     Indication: Back pain
  3. TRAZODONE [Concomitant]
     Active Substance: TRAZODONE HYDROCHLORIDE
     Indication: Back pain

REACTIONS (4)
  - Hypoxia [Unknown]
  - Hypoventilation [Unknown]
  - Hypercapnia [Unknown]
  - Product use in unapproved indication [Unknown]
